FAERS Safety Report 6287666-9 (Version None)
Quarter: 2009Q3

REPORT INFORMATION
  Report Type: 
  Country: None (occurrence: None)
  Receive Date: 20090717
  Receipt Date: 20090313
  Transmission Date: 20100115
  Serious: Yes (Death)
  Sender: FDA-Public Use
  Company Number: 2009SP005605

PATIENT
  Age: 60 Year
  Sex: Female

DRUGS (1)
  1. INTEGRILIN [Suspect]
     Indication: MYOCARDIAL INFARCTION
     Dates: start: 20090301

REACTIONS (2)
  - HAEMORRHAGE [None]
  - THROMBOCYTOPENIA [None]
